FAERS Safety Report 6517537-1 (Version None)
Quarter: 2009Q4

REPORT INFORMATION
  Report Type: 
  Country: None (occurrence: None)
  Receive Date: 20091224
  Receipt Date: 20091210
  Transmission Date: 20100525
  Serious: Yes (Other)
  Sender: FDA-Public Use
  Company Number: BR-PFIZER INC-2009308402

PATIENT
  Sex: Female
  Weight: 58 kg

DRUGS (4)
  1. DOSTINEX [Suspect]
     Indication: BLOOD PROLACTIN INCREASED
     Dosage: 0.5 MG, TWICE A WEEK
     Route: 048
     Dates: start: 20091207
  2. FLUOXETINE [Concomitant]
     Dosage: UNK
  3. PROVERA [Concomitant]
     Dosage: UNK
  4. DIAZEPAM [Concomitant]
     Dosage: UNK
     Route: 030

REACTIONS (7)
  - DIZZINESS [None]
  - HYPERHIDROSIS [None]
  - HYPOAESTHESIA [None]
  - MUSCLE RIGIDITY [None]
  - NAUSEA [None]
  - TREMOR [None]
  - VISUAL IMPAIRMENT [None]
